FAERS Safety Report 12653200 (Version 1)
Quarter: 2016Q3

REPORT INFORMATION
  Report Type: Spontaneous
  Country: JP (occurrence: JP)
  Receive Date: 20160815
  Receipt Date: 20160815
  Transmission Date: 20161109
  Serious: Yes (Death, Hospitalization)
  Sender: FDA-Public Use
  Company Number: JP-IMPAX LABORATORIES, INC-2016-IPXL-00862

PATIENT
  Age: 6 Year
  Sex: Male

DRUGS (1)
  1. DIVALPROEX SODIUM ER [Suspect]
     Active Substance: DIVALPROEX SODIUM
     Indication: SEIZURE
     Dosage: (30 MG/KG/DAY), 2 /DAY
     Route: 048

REACTIONS (5)
  - Kaposi^s sarcoma classical type [Fatal]
  - Human herpesvirus 8 infection [Fatal]
  - Respiratory tract infection [Fatal]
  - Respiratory distress [Fatal]
  - Infection reactivation [Fatal]

NARRATIVE: CASE EVENT DATE: 20140403
